FAERS Safety Report 14922506 (Version 3)
Quarter: 2018Q2

REPORT INFORMATION
  Report Type: Spontaneous
  Country: US (occurrence: US)
  Receive Date: 20180522
  Receipt Date: 20180622
  Transmission Date: 20180711
  Serious: Yes (Hospitalization)
  Sender: FDA-Public Use
  Company Number: US-PFIZER INC-2018188533

PATIENT
  Age: 79 Year
  Sex: Male
  Weight: 67 kg

DRUGS (8)
  1. OXYCODONE [Concomitant]
     Active Substance: OXYCODONE
     Dosage: UNK
  2. AMLODIPINE [Concomitant]
     Active Substance: AMLODIPINE BESYLATE
     Dosage: UNK
  3. TYLENOL [Concomitant]
     Active Substance: ACETAMINOPHEN
     Dosage: UNK
  4. CALCIUM [Concomitant]
     Active Substance: CALCIUM
     Dosage: UNK
  5. PROTONIX [Concomitant]
     Active Substance: PANTOPRAZOLE SODIUM
     Dosage: UNK
  6. SUTENT [Suspect]
     Active Substance: SUNITINIB MALATE
     Indication: NEUROENDOCRINE TUMOUR
     Dosage: 37.5 MG, DAILY
     Dates: start: 20180513
  7. XGEVA [Concomitant]
     Active Substance: DENOSUMAB
     Dosage: UNK
  8. LEVOTHYROXINE. [Concomitant]
     Active Substance: LEVOTHYROXINE
     Dosage: UNK

REACTIONS (14)
  - Pain [Recovered/Resolved]
  - Oropharyngeal pain [Unknown]
  - Weight decreased [Unknown]
  - Viral infection [Unknown]
  - Eating disorder [Unknown]
  - Odynophagia [Unknown]
  - Musculoskeletal pain [Recovering/Resolving]
  - Joint swelling [Unknown]
  - Mass [Unknown]
  - Dizziness [Unknown]
  - Product use in unapproved indication [Unknown]
  - Fatigue [Unknown]
  - Somnolence [Unknown]
  - Gingival pain [Unknown]

NARRATIVE: CASE EVENT DATE: 201805
